FAERS Safety Report 8133032-0 (Version None)
Quarter: 2012Q1

REPORT INFORMATION
  Report Type: 
  Country: None (occurrence: None)
  Receive Date: 20120213
  Receipt Date: 20120206
  Transmission Date: 20120608
  Serious: Yes (Hospitalization, Other)
  Sender: FDA-Public Use
  Company Number: PHHY2009CA15583

PATIENT
  Sex: Female

DRUGS (18)
  1. NOVO-PANTOPRAZOLE [Concomitant]
  2. SANDOSTATIN [Suspect]
     Indication: NEUROENDOCRINE TUMOUR
     Route: 058
  3. SANDOSTATIN [Suspect]
     Dosage: 20 MG, BID
     Route: 058
  4. SWINE FLU VACCINE, MONOVALENT [Concomitant]
  5. METFORMIN HCL [Concomitant]
  6. OXAZEPAM [Concomitant]
  7. NOVO-LOPERAMIDE [Concomitant]
  8. NOVO-DOCUSATE [Concomitant]
  9. SANDOSTATIN LAR [Suspect]
     Dosage: 20 MG, EVERY 3 WEEKS
     Route: 030
     Dates: start: 20100602
  10. SANDOSTATIN LAR [Suspect]
     Dosage: 20 MG, QMO
     Route: 030
     Dates: end: 20110405
  11. SANDOSTATIN LAR [Suspect]
     Indication: NEUROENDOCRINE TUMOUR
     Dosage: 20 MG, EVERY 4 WEEKS
     Route: 030
     Dates: start: 20070824, end: 20110405
  12. CYPROHEPTADINE HCL [Concomitant]
  13. SENNTAB [Concomitant]
  14. FERROUS SULFATE TAB [Concomitant]
  15. ASAPHEN [Concomitant]
  16. NOVO-VENLAFAXINE [Concomitant]
  17. CALCIUM WITH VITAMIN D [Concomitant]
  18. SYNTHROID [Concomitant]

REACTIONS (33)
  - SPEECH DISORDER [None]
  - TRANSIENT ISCHAEMIC ATTACK [None]
  - PSYCHIATRIC SYMPTOM [None]
  - ASTHENIA [None]
  - INFLUENZA [None]
  - FEELING ABNORMAL [None]
  - NAUSEA [None]
  - DIARRHOEA [None]
  - PEDAL PULSE ABNORMAL [None]
  - MUSCULAR WEAKNESS [None]
  - ARTHRALGIA [None]
  - ABDOMINAL PAIN UPPER [None]
  - BLOOD SODIUM DECREASED [None]
  - GENERAL PHYSICAL HEALTH DETERIORATION [None]
  - MEMORY IMPAIRMENT [None]
  - ABDOMINAL PAIN [None]
  - PAIN IN EXTREMITY [None]
  - VISUAL FIELD DEFECT [None]
  - STRESS [None]
  - MALAISE [None]
  - HYPOPHAGIA [None]
  - LOSS OF CONSCIOUSNESS [None]
  - BLOOD PRESSURE INCREASED [None]
  - FATIGUE [None]
  - GAIT DISTURBANCE [None]
  - INJECTION SITE PAIN [None]
  - VOMITING [None]
  - MYALGIA [None]
  - BACK PAIN [None]
  - CEREBROVASCULAR ACCIDENT [None]
  - EPISTAXIS [None]
  - ANAEMIA [None]
  - HYPOTENSION [None]
